FAERS Safety Report 4650322-4 (Version None)
Quarter: 2005Q2

REPORT INFORMATION
  Report Type: 
  Country: None (occurrence: None)
  Receive Date: 20050429
  Receipt Date: 20050418
  Transmission Date: 20051028
  Serious: Yes (Other)
  Sender: FDA-Public Use
  Company Number: 2005062009

PATIENT
  Age: 12 Year
  Sex: Female
  Weight: 46.7 kg

DRUGS (1)
  1. GENOTROPIN [Suspect]
     Indication: HYPOPITUITARISM
     Dosage: 2 MG (DAILY)
     Dates: start: 20020915, end: 20041103

REACTIONS (1)
  - GROWTH ACCELERATED [None]
